FAERS Safety Report 6510627-9 (Version None)
Quarter: 2009Q4

REPORT INFORMATION
  Report Type: 
  Country: None (occurrence: None)
  Receive Date: 20091222
  Receipt Date: 20090106
  Transmission Date: 20100525
  Serious: No
  Sender: FDA-Public Use
  Company Number: US-ASTRAZENECA-2009UW00503

PATIENT
  Age: 70 Year
  Sex: Female
  Weight: 62.6 kg

DRUGS (5)
  1. CRESTOR [Suspect]
     Indication: HYPERCHOLESTEROLAEMIA
     Dosage: 5 MG
     Route: 048
     Dates: start: 20081001
  2. PREMARIN [Concomitant]
  3. MUSCLE RELAXANT [Concomitant]
  4. LISINOPRIL [Concomitant]
  5. CYMBALTA [Concomitant]

REACTIONS (3)
  - MEMORY IMPAIRMENT [None]
  - THYROXINE INCREASED [None]
  - TRI-IODOTHYRONINE INCREASED [None]
